FAERS Safety Report 15213727 (Version 9)
Quarter: 2018Q4

REPORT INFORMATION
  Report Type: Spontaneous
  Country: US (occurrence: US)
  Receive Date: 20180730
  Receipt Date: 20181011
  Transmission Date: 20190204
  Serious: No
  Sender: FDA-Public Use
  Company Number: US-SA-2018SA012426

PATIENT
  Age: 67 Year
  Sex: Female

DRUGS (1)
  1. AVAPRO [Suspect]
     Active Substance: IRBESARTAN
     Indication: HYPERTENSION
     Dosage: 300 MG,QD
     Route: 048

REACTIONS (14)
  - Agitation [Recovered/Resolved]
  - Burning sensation [Unknown]
  - Feeling abnormal [Unknown]
  - Tinnitus [Unknown]
  - Asthenia [Recovered/Resolved]
  - Chest discomfort [Unknown]
  - Fatigue [Unknown]
  - Nausea [Unknown]
  - Nervousness [Recovered/Resolved]
  - Medication error [Unknown]
  - Malaise [Unknown]
  - Pain [Not Recovered/Not Resolved]
  - Headache [Unknown]
  - Drug ineffective [Unknown]
